FAERS Safety Report 10388947 (Version 1)
Quarter: 2014Q1

REPORT INFORMATION
  Report Type: Spontaneous
  Country: US (occurrence: None)
  Receive Date: 20140306
  Receipt Date: 20140306
  Transmission Date: 20141002
  Serious: Yes (Hospitalization)
  Sender: FDA-Public Use
  Company Number: 163-21880-13021543

PATIENT
  Age: 73 Year
  Sex: Male
  Weight: 99.79 kg

DRUGS (5)
  1. REVLIMID (LENALIDOMIDE)(10 MILLIGRAM, CAPSULES) [Suspect]
     Indication: MYELODYSPLASTIC SYNDROME
     Route: 048
     Dates: start: 20130116, end: 20130316
  2. OXYCONTIN(OXYCODONE HYDROCHLORIDE)(UNKNOWN) [Concomitant]
  3. PROCRIT(ERYTHROPOIETIN)(UNKNOWN)? [Concomitant]
  4. VIDAZA(AZACITIDINE)(UNKNOWN) [Suspect]
  5. NEUPOGEN(FILGRASTIM)(UNKNOWN) [Concomitant]

REACTIONS (2)
  - Epistaxis [None]
  - Contusion [None]
